FAERS Safety Report 6597059-2 (Version None)
Quarter: 2010Q2

REPORT INFORMATION
  Report Type: 
  Country: None (occurrence: None)
  Receive Date: 20100223
  Receipt Date: 20100223
  Transmission Date: 20101027
  Serious: Yes (Other)
  Sender: FDA-Public Use
  Company Number: B0599364A

PATIENT
  Age: 52 Year
  Sex: Male

DRUGS (4)
  1. HEPSERA [Suspect]
     Indication: HEPATITIS B
     Dosage: 10MG PER DAY
     Route: 065
     Dates: start: 20080301
  2. LAMIVUDINE [Suspect]
     Indication: HEPATITIS B
     Dosage: 100MG PER DAY
     Route: 065
     Dates: start: 20041001
  3. ENTECAVIR [Suspect]
     Indication: HEPATITIS B
     Route: 065
  4. INSULIN [Concomitant]

REACTIONS (4)
  - ALANINE AMINOTRANSFERASE INCREASED [None]
  - DRUG RESISTANCE [None]
  - HEPATITIS B DNA INCREASED [None]
  - THERAPEUTIC RESPONSE DECREASED [None]
